FAERS Safety Report 12491019 (Version 1)
Quarter: 2016Q2

REPORT INFORMATION
  Report Type: Spontaneous
  Country: US (occurrence: US)
  Receive Date: 20160623
  Receipt Date: 20160623
  Transmission Date: 20160815
  Serious: Yes (Other)
  Sender: FDA-Public Use
  Company Number: US-ABBVIE-16K-163-1654757-00

PATIENT
  Age: 17 Year

DRUGS (5)
  1. HUMIRA [Suspect]
     Active Substance: ADALIMUMAB
     Indication: PRODUCT USED FOR UNKNOWN INDICATION
     Route: 058
  2. METHOTREXATE [Suspect]
     Active Substance: METHOTREXATE
     Indication: PRODUCT USED FOR UNKNOWN INDICATION
     Route: 065
  3. REMICADE [Suspect]
     Active Substance: INFLIXIMAB
     Indication: PRODUCT USED FOR UNKNOWN INDICATION
     Route: 065
  4. IMURAN [Suspect]
     Active Substance: AZATHIOPRINE
     Indication: PRODUCT USED FOR UNKNOWN INDICATION
     Route: 065
  5. ENBREL [Suspect]
     Active Substance: ETANERCEPT
     Indication: PRODUCT USED FOR UNKNOWN INDICATION
     Route: 065

REACTIONS (11)
  - Muscle atrophy [Recovering/Resolving]
  - Retinitis [Unknown]
  - Blindness transient [Unknown]
  - Postoperative adhesion [Unknown]
  - Uveitis [Recovering/Resolving]
  - Arthritis reactive [Unknown]
  - Uveitis [Recovered/Resolved]
  - Uveitis [Recovering/Resolving]
  - Fluid retention [Unknown]
  - Vitreous detachment [Unknown]
  - Cataract [Unknown]

NARRATIVE: CASE EVENT DATE: 2005
